FAERS Safety Report 6440097-0 (Version None)
Quarter: 2009Q4

REPORT INFORMATION
  Report Type: 
  Country: None (occurrence: None)
  Receive Date: 20091113
  Receipt Date: 20081016
  Transmission Date: 20100525
  Serious: No
  Sender: FDA-Public Use
  Company Number: A0753038A

PATIENT
  Sex: Female

DRUGS (4)
  1. COREG [Suspect]
     Indication: DRUG USE FOR UNKNOWN INDICATION
     Dosage: .25MG PER DAY
     Route: 048
  2. LISINOPRIL [Concomitant]
  3. FUROSEMIDE [Concomitant]
  4. CARAZOLOL [Concomitant]

REACTIONS (3)
  - DECREASED APPETITE [None]
  - DYSPEPSIA [None]
  - WEIGHT DECREASED [None]
